FAERS Safety Report 18479722 (Version 2)
Quarter: 2021Q1

REPORT INFORMATION
  Report Type: Report from Study
  Country: AU (occurrence: AU)
  Receive Date: 20201109
  Receipt Date: 20210323
  Transmission Date: 20210419
  Serious: Yes (Other)
  Sender: FDA-Public Use
  Company Number: AU-PFIZER INC-2020425364

PATIENT
  Age: 11 Year
  Sex: Female
  Weight: 44.1 kg

DRUGS (6)
  1. TOFACITINIB CITRATE [Suspect]
     Active Substance: TOFACITINIB CITRATE
     Dosage: 7.5 MG, DAILY (MAXIMUM)
     Route: 048
  2. MINOXIDIL. [Concomitant]
     Active Substance: MINOXIDIL
     Indication: ALOPECIA AREATA
     Dosage: 0.5 MG, 1X/DAY
     Route: 048
  3. PREDNISOLONE. [Concomitant]
     Active Substance: PREDNISOLONE
     Dosage: 0.3MG/KG/DAY (MAXIMUM) TAPERED OVER 12 WEEKS
  4. CLARITHROMYCIN. [Concomitant]
     Active Substance: CLARITHROMYCIN
     Dosage: 250 MG, 1X/DAY
  5. CLOBETASOL PROPIONATE. [Concomitant]
     Active Substance: CLOBETASOL PROPIONATE
     Dosage: 0.05 % (INTERMITTENTLY)
  6. TOFACITINIB CITRATE [Suspect]
     Active Substance: TOFACITINIB CITRATE
     Indication: ALOPECIA AREATA
     Dosage: 2.5 MG, DAILY  (INITIAL)
     Route: 048

REACTIONS (4)
  - Alanine aminotransferase increased [Unknown]
  - Blood triglycerides increased [Unknown]
  - Hyperkalaemia [Unknown]
  - Eosinophilia [Unknown]
